FAERS Safety Report 15550784 (Version 10)
Quarter: 2020Q3

REPORT INFORMATION
  Report Type: Report from Study
  Country: DE (occurrence: DE)
  Receive Date: 20181025
  Receipt Date: 20200924
  Transmission Date: 20201102
  Serious: Yes (Hospitalization, Other)
  Sender: FDA-Public Use
  Company Number: DE-PFIZER INC-2018433963

PATIENT
  Sex: Female
  Weight: 50 kg

DRUGS (25)
  1. KISQALI [Suspect]
     Active Substance: RIBOCICLIB
     Dosage: 400 MG, UNK
     Route: 048
     Dates: start: 20180412
  2. KISQALI [Suspect]
     Active Substance: RIBOCICLIB
     Dosage: 400 MG, DAILY
     Route: 048
     Dates: start: 20180420, end: 20180912
  3. KISQALI [Suspect]
     Active Substance: RIBOCICLIB
     Dosage: 400 MG, 1X/DAY  (SCHEMA 21 DAYS INTAKE, THAN 7 DAYS PAUSE)
     Route: 048
     Dates: start: 20190502, end: 20190529
  4. HYDROMORPHONE [Suspect]
     Active Substance: HYDROMORPHONE
     Indication: PAIN
     Dosage: 4 MG, 2X/DAY
     Route: 065
     Dates: start: 20180521, end: 20180606
  5. LETROZOLE. [Suspect]
     Active Substance: LETROZOLE
     Indication: BREAST CANCER
     Dosage: 2.5 MG, 1X/DAY (QD)
     Route: 048
     Dates: start: 20180216, end: 20180504
  6. KISQALI [Suspect]
     Active Substance: RIBOCICLIB
     Dosage: 400 MG, DAILY
     Route: 048
     Dates: start: 20190711
  7. LISINOPRIL. [Concomitant]
     Active Substance: LISINOPRIL
     Dosage: UNK
     Route: 065
  8. NALOXONE HYDROCHLORIDE/TILIDINE HYDROCHLORIDE [Suspect]
     Active Substance: NALOXONE HYDROCHLORIDE\TILIDINE HYDROCHLORIDE
     Indication: CONSTIPATION
     Dosage: 200 MG, 1X/DAY (QD)
     Route: 048
     Dates: start: 20180608
  9. KISQALI [Suspect]
     Active Substance: RIBOCICLIB
     Dosage: 400 MG, 1X/DAY (SCHEMA 21 DAYS INTAKE, THAN 7 DAYS PAUSE)
     Route: 048
     Dates: start: 20180628, end: 20180919
  10. KISQALI [Suspect]
     Active Substance: RIBOCICLIB
     Dosage: 400 MG, 1X/DAY  (SCHEMA 21 DAYS INTAKE, THAN 7 DAYS PAUSE)
     Route: 048
     Dates: start: 20181227, end: 20190123
  11. KISQALI [Suspect]
     Active Substance: RIBOCICLIB
     Dosage: 400 MG, 1X/DAY (SCHEMA 21 DAYS INTAKE, THAN 7 DAYS PAUSE)
     Route: 048
     Dates: start: 20190606, end: 20190703
  12. KISQALI [Suspect]
     Active Substance: RIBOCICLIB
     Dosage: 400 MG, DAILY
     Route: 048
     Dates: start: 20181227, end: 20190116
  13. KISQALI [Suspect]
     Active Substance: RIBOCICLIB
     Dosage: 400 MG, 1X/DAY (SCHEMA 21 DAYS INTAKE, THAN 7 DAYS PAUSE)
     Route: 048
     Dates: start: 20180420, end: 20180614
  14. HYDROMORPHONE [Suspect]
     Active Substance: HYDROMORPHONE
     Dosage: 4 MG, 2X/DAY
     Route: 065
     Dates: start: 20180621
  15. AMLODIPINE [Concomitant]
     Active Substance: AMLODIPINE BESYLATE
     Route: 065
  16. EXEMESTANE. [Suspect]
     Active Substance: EXEMESTANE
     Indication: BREAST CANCER
     Dosage: 25 MG, 1X/DAY (QD)
     Route: 048
     Dates: start: 20180505
  17. KISQALI [Suspect]
     Active Substance: RIBOCICLIB
     Indication: BREAST CANCER
     Dosage: 600 MG, 1X/DAY (D1 ? D21)
     Route: 048
     Dates: start: 20180216, end: 20180411
  18. L THYROXINE [Concomitant]
     Active Substance: LEVOTHYROXINE SODIUM
     Dosage: UNK
     Route: 065
  19. KISQALI [Suspect]
     Active Substance: RIBOCICLIB
     Dosage: 400 MG, DAILY
     Route: 048
     Dates: start: 20190131, end: 20190417
  20. KISQALI [Suspect]
     Active Substance: RIBOCICLIB
     Dosage: 600 MG, 1X/DAY (SCHEMA 21 DAYS INTAKE, THAN 7 DAYS PAUSE)
     Route: 048
     Dates: start: 20180216, end: 20180302
  21. KISQALI [Suspect]
     Active Substance: RIBOCICLIB
     Dosage: 400 MG, 1X/DAY (SCHEMA 21 DAYS INTAKE, THAN 7 DAYS PAUSE)
     Route: 048
     Dates: start: 20180316, end: 20180411
  22. KISQALI [Suspect]
     Active Substance: RIBOCICLIB
     Dosage: 400 MG, DAILY
     Route: 048
     Dates: start: 20180927, end: 20181212
  23. KISQALI [Suspect]
     Active Substance: RIBOCICLIB
     Dosage: 400 MG, DAILY
     Route: 048
     Dates: start: 20190502, end: 20190522
  24. KISQALI [Suspect]
     Active Substance: RIBOCICLIB
     Dosage: 400 MG, 1X/DAY  (SCHEMA 21 DAYS INTAKE, THAN 7 DAYS PAUSE)
     Route: 048
     Dates: start: 20180927, end: 20181219
  25. KISQALI [Suspect]
     Active Substance: RIBOCICLIB
     Dosage: 400 MG, 1X/DAY (SCHEMA 21 DAYS INTAKE, THAN 7 DAYS PAUSE)
     Route: 048
     Dates: start: 20190131, end: 20190423

REACTIONS (22)
  - Eructation [Unknown]
  - Nausea [Recovered/Resolved]
  - Pain [Recovered/Resolved]
  - Neutrophil count decreased [Unknown]
  - Pruritus [Recovered/Resolved]
  - Hyperhidrosis [Not Recovered/Not Resolved]
  - Dysphagia [Recovered/Resolved]
  - Gastrointestinal disorder [Recovered/Resolved]
  - Diarrhoea [Recovered/Resolved]
  - Nasopharyngitis [Recovered/Resolved]
  - Myalgia [Recovered/Resolved]
  - Arthralgia [Recovered/Resolved]
  - Weight decreased [Recovered/Resolved]
  - Paraesthesia [Recovering/Resolving]
  - Decreased appetite [Unknown]
  - Pain in extremity [Recovered/Resolved]
  - Inflammation [Recovered/Resolved]
  - Constipation [Recovered/Resolved]
  - Arthralgia [Recovered/Resolved]
  - Depression [Recovering/Resolving]
  - Skin fissures [Recovering/Resolving]
  - Arthralgia [Recovered/Resolved]

NARRATIVE: CASE EVENT DATE: 20180301
